FAERS Safety Report 9557903 (Version 2)
Quarter: 2013Q3

REPORT INFORMATION
  Report Type: Report from Study
  Country: US (occurrence: US)
  Receive Date: 20130926
  Receipt Date: 20130926
  Transmission Date: 20140515
  Serious: Yes (Hospitalization)
  Sender: FDA-Public Use
  Company Number: US-ABBVIE-13P-163-1126471-00

PATIENT
  Age: 40 Year
  Sex: Female
  Weight: 81.27 kg

DRUGS (3)
  1. HUMIRA [Suspect]
     Indication: RHEUMATOID ARTHRITIS
     Route: 058
     Dates: start: 20110909, end: 20130629
  2. HUMIRA [Suspect]
     Route: 058
     Dates: start: 20130731
  3. KETOPROFEN [Concomitant]
     Indication: PAIN

REACTIONS (4)
  - Uterine haemorrhage [Recovered/Resolved]
  - Sensitivity of teeth [Not Recovered/Not Resolved]
  - Drug ineffective [Not Recovered/Not Resolved]
  - Pain [Not Recovered/Not Resolved]
